FAERS Safety Report 9409315 (Version 2)
Quarter: 2013Q4

REPORT INFORMATION
  Report Type: Spontaneous
  Country: US (occurrence: US)
  Receive Date: 20130719
  Receipt Date: 20131101
  Transmission Date: 20140711
  Serious: Yes (Other)
  Sender: FDA-Public Use
  Company Number: US-BAYER-2013-085272

PATIENT
  Age: 17 Year
  Sex: Female
  Weight: 83.9 kg

DRUGS (4)
  1. MIRENA [Suspect]
     Dosage: 20 MCG/24HR, CONT
     Route: 015
     Dates: start: 20100206, end: 20110722
  2. ZYRTEC [Concomitant]
     Dosage: 1 MG/ML, UNK
     Route: 048
     Dates: start: 20110428
  3. FLONASE [Concomitant]
     Dosage: 0.05 ?G, UNK
     Route: 045
     Dates: start: 20110428
  4. ZADITOR [Concomitant]
     Dosage: 0.025%
     Route: 047
     Dates: start: 20110428

REACTIONS (15)
  - Uterine perforation [None]
  - Abdominal pain [None]
  - Pelvic pain [None]
  - Infertility female [None]
  - Injury [None]
  - Emotional distress [None]
  - Medical device complication [None]
  - Genital haemorrhage [None]
  - Medical device discomfort [None]
  - Depression [None]
  - Anxiety [None]
  - Depressed mood [None]
  - Fear [None]
  - Dyspareunia [None]
  - Internal injury [None]
